FAERS Safety Report 15839984 (Version 3)
Quarter: 2022Q3

REPORT INFORMATION
  Report Type: Spontaneous
  Country: US (occurrence: US)
  Receive Date: 20190117
  Receipt Date: 20220818
  Transmission Date: 20221026
  Serious: No
  Sender: FDA-Public Use
  Company Number: US-PFIZER INC-2017189937

PATIENT
  Age: 9 Year
  Sex: Male
  Weight: 25 kg

DRUGS (2)
  1. GENOTROPIN [Suspect]
     Active Substance: SOMATROPIN
     Dosage: 1.4 MG, 6 DAYS A WEEK
     Dates: start: 20170402
  2. GENOTROPIN [Suspect]
     Active Substance: SOMATROPIN
     Dosage: 1.2 ML, UNK

REACTIONS (4)
  - Insulin-like growth factor decreased [Unknown]
  - Wrong technique in device usage process [Unknown]
  - Incorrect dose administered [Unknown]
  - Device issue [Unknown]

NARRATIVE: CASE EVENT DATE: 20180813
